FAERS Safety Report 10136396 (Version 2)
Quarter: 2014Q2

REPORT INFORMATION
  Report Type: Spontaneous
  Country: JP (occurrence: JP)
  Receive Date: 20140429
  Receipt Date: 20140521
  Transmission Date: 20141212
  Serious: Yes (Hospitalization)
  Sender: FDA-Public Use
  Company Number: JP-JNJFOC-20140415294

PATIENT
  Age: 52 Year
  Sex: Male
  Weight: 71.1 kg

DRUGS (14)
  1. RISPERDAL CONSTA [Suspect]
     Indication: SUBSTANCE-INDUCED PSYCHOTIC DISORDER
     Route: 030
     Dates: start: 20140208, end: 20140208
  2. RISPERDAL CONSTA [Suspect]
     Indication: SUBSTANCE-INDUCED PSYCHOTIC DISORDER
     Route: 030
     Dates: start: 20140125, end: 20140125
  3. RISPERDAL CONSTA [Suspect]
     Indication: SUBSTANCE-INDUCED PSYCHOTIC DISORDER
     Route: 030
     Dates: start: 20131228, end: 20131228
  4. RISPERDAL CONSTA [Suspect]
     Indication: SUBSTANCE-INDUCED PSYCHOTIC DISORDER
     Route: 030
     Dates: start: 20131214, end: 20131214
  5. RISPERDAL CONSTA [Suspect]
     Indication: SUBSTANCE-INDUCED PSYCHOTIC DISORDER
     Route: 030
     Dates: start: 20131130, end: 20131130
  6. RIVOTRIL [Concomitant]
     Indication: OCULOGYRIC CRISIS
     Route: 048
     Dates: end: 201402
  7. RIVOTRIL [Concomitant]
     Indication: OCULOGYRIC CRISIS
     Route: 048
     Dates: end: 201402
  8. SILECE [Concomitant]
     Route: 065
     Dates: end: 201402
  9. DAIOKANZOTO [Concomitant]
     Route: 048
  10. OMEPRAL [Concomitant]
     Route: 048
  11. MYONAL [Concomitant]
     Route: 048
  12. OPALMON [Concomitant]
     Route: 048
  13. LACTOMIN [Concomitant]
     Route: 048
  14. TAKEPRON [Concomitant]
     Route: 048

REACTIONS (1)
  - Condition aggravated [Recovered/Resolved]
